FAERS Safety Report 6763897-6 (Version None)
Quarter: 2010Q2

REPORT INFORMATION
  Report Type: 
  Country: None (occurrence: None)
  Receive Date: 20100610
  Receipt Date: 20100531
  Transmission Date: 20101027
  Serious: Yes (Other)
  Sender: FDA-Public Use
  Company Number: BR-PFIZER INC-2009308783

PATIENT
  Age: 31 Year
  Sex: Female
  Weight: 111 kg

DRUGS (10)
  1. GEODON [Suspect]
     Indication: SCHIZOPHRENIA
     Dosage: 80 MG, 1X/DAY
     Route: 048
     Dates: start: 20080101
  2. GEODON [Suspect]
     Dosage: 120MG, DAILY
     Route: 048
  3. FLUOXETINE [Suspect]
     Dosage: 20 MG, UNK
  4. FLUOXETINE [Suspect]
     Dosage: UNK
     Dates: start: 20090101
  5. DIAZEPAM [Concomitant]
     Dosage: 2 MG, UNK
     Dates: start: 20100301
  6. CLONAZEPAM [Concomitant]
     Dosage: UNK
     Dates: start: 20100101, end: 20100101
  7. SERTRALINE [Concomitant]
     Dosage: UNK
  8. LEVOMEPROMAZINE HYDROCHLORIDE [Concomitant]
     Dosage: UNK
  9. CHLORPROMAZINE [Concomitant]
     Dosage: UNK
  10. PROMETHAZINE [Concomitant]
     Dosage: UNK

REACTIONS (9)
  - DEPRESSED MOOD [None]
  - DRUG DEPENDENCE [None]
  - FEELING ABNORMAL [None]
  - HYPERTENSION [None]
  - INCREASED APPETITE [None]
  - INFERTILITY FEMALE [None]
  - INSOMNIA [None]
  - NERVOUSNESS [None]
  - WEIGHT INCREASED [None]
